FAERS Safety Report 13191440 (Version 3)
Quarter: 2022Q4

REPORT INFORMATION
  Report Type: Spontaneous
  Country: FR (occurrence: FR)
  Receive Date: 20170207
  Receipt Date: 20221011
  Transmission Date: 20230113
  Serious: Yes (Death, Hospitalization, Other)
  Sender: FDA-Public Use
  Company Number: FR-ACCORD-047915

PATIENT
  Age: 62 Year
  Sex: Male

DRUGS (20)
  1. TACROLIMUS [Suspect]
     Active Substance: TACROLIMUS
     Indication: Liver transplant
     Route: 048
     Dates: start: 201503
  2. COTRIMOXAZOLE [Suspect]
     Active Substance: SULFAMETHOXAZOLE\TRIMETHOPRIM
     Indication: Anti-infective therapy
     Dosage: EVERY 48 HOURS
     Route: 048
     Dates: start: 20150303
  3. CELLCEPT [Suspect]
     Active Substance: MYCOPHENOLATE MOFETIL
     Indication: Liver transplant
     Dates: start: 2015
  4. BASILIXIMAB [Suspect]
     Active Substance: BASILIXIMAB
     Indication: Liver transplant
     Dates: start: 20150303
  5. PROGRAF [Suspect]
     Active Substance: TACROLIMUS
     Indication: Liver transplant
  6. PIPERACILLIN SODIUM\TAZOBACTAM SODIUM [Suspect]
     Active Substance: PIPERACILLIN SODIUM\TAZOBACTAM SODIUM
     Dosage: 4 GRAM DAILY FROM FEB-2015 TO 2015
     Route: 042
     Dates: start: 201502, end: 2015
  7. SOLU-MEDROL [Suspect]
     Active Substance: METHYLPREDNISOLONE SODIUM SUCCINATE
     Indication: Liver transplant
     Dates: start: 2015
  8. METHYLPREDNISOLONE HEMISUCCINATE [Suspect]
     Active Substance: METHYLPREDNISOLONE HEMISUCCINATE
     Indication: Liver transplant
     Dates: start: 20150303
  9. CASPOFUNGIN ACETATE [Suspect]
     Active Substance: CASPOFUNGIN ACETATE
     Indication: Fungaemia
     Route: 042
     Dates: start: 201503, end: 201503
  10. FLUCONAZOLE [Suspect]
     Active Substance: FLUCONAZOLE
  11. FLUMAZENIL [Concomitant]
     Active Substance: FLUMAZENIL
     Indication: Somnolence
     Route: 042
     Dates: start: 201502, end: 201502
  12. NOREPINEPHRINE [Concomitant]
     Active Substance: NOREPINEPHRINE
     Indication: Anuria
     Dates: start: 2015, end: 2015
  13. TACROLIMUS [Suspect]
     Active Substance: TACROLIMUS
     Indication: Liver transplant
     Dosage: 2 MG, BID
     Dates: start: 20150303
  14. TACROLIMUS [Suspect]
     Active Substance: TACROLIMUS
     Indication: Prophylaxis against transplant rejection
     Dosage: 2 MG, 2X/DAY
     Dates: start: 2009
  15. BASILIXIMAB [Suspect]
     Active Substance: BASILIXIMAB
     Indication: Immunosuppression
     Dates: start: 20150303
  16. FLUMAZENIL [Concomitant]
     Active Substance: FLUMAZENIL
     Indication: Loss of consciousness
     Dates: start: 201502, end: 201502
  17. SOLU-MEDROL [Suspect]
     Active Substance: METHYLPREDNISOLONE SODIUM SUCCINATE
     Indication: Immunosuppression
     Dates: start: 2015
  18. CELLCEPT [Suspect]
     Active Substance: MYCOPHENOLATE MOFETIL
     Indication: Immunosuppression
     Dosage: 1 G,BID
     Dates: start: 2015
  19. PIPERACILLIN SODIUM\TAZOBACTAM SODIUM [Suspect]
     Active Substance: PIPERACILLIN SODIUM\TAZOBACTAM SODIUM
     Indication: Antibiotic therapy
     Dosage: 4 G, TID
     Dates: start: 201502, end: 2015
  20. TACROLIMUS [Suspect]
     Active Substance: TACROLIMUS
     Indication: Immunosuppressant drug therapy
     Dates: start: 201503

REACTIONS (9)
  - Multiple organ dysfunction syndrome [Fatal]
  - Septic shock [Fatal]
  - Fungal infection [Fatal]
  - Drug ineffective [Fatal]
  - Sepsis [Fatal]
  - Hyperthermia [Fatal]
  - Systemic mycosis [Fatal]
  - Enterococcal infection [Unknown]
  - Pneumococcal infection [Unknown]

NARRATIVE: CASE EVENT DATE: 20150301
